FAERS Safety Report 18354820 (Version 1)
Quarter: 2020Q4

REPORT INFORMATION
  Report Type: Report from Study
  Country: US (occurrence: US)
  Receive Date: 20201007
  Receipt Date: 20201007
  Transmission Date: 20210114
  Serious: Yes (Hospitalization)
  Sender: FDA-Public Use
  Company Number: US-ASTELLAS-2020US034970

PATIENT
  Age: 59 Year
  Sex: Male

DRUGS (7)
  1. NOXAFIL [Suspect]
     Active Substance: POSACONAZOLE
     Indication: PRODUCT USED FOR UNKNOWN INDICATION
     Dosage: UNK UNK, UNKNOWN FREQ.
     Route: 065
     Dates: start: 20200708, end: 20200721
  2. TACROLIMUS. [Suspect]
     Active Substance: TACROLIMUS
     Dosage: 0.5 MG, TWICE DAILY
     Route: 048
     Dates: start: 20200724
  3. NOXAFIL [Suspect]
     Active Substance: POSACONAZOLE
     Dosage: UNK UNK, UNKNOWN FREQ.
     Route: 065
     Dates: start: 20200726
  4. TACROLIMUS. [Suspect]
     Active Substance: TACROLIMUS
     Indication: PRODUCT USED FOR UNKNOWN INDICATION
     Dosage: UNK UNK, UNKNOWN FREQ. (1.5MG IN THE MORNINIG AND 2MG IN THE EVENING)
     Route: 065
     Dates: start: 20131029
  5. TACROLIMUS. [Suspect]
     Active Substance: TACROLIMUS
     Dosage: 0.5 MG, TWICE DAILY
     Route: 048
     Dates: start: 20200708, end: 20200721
  6. INCB039110 [Suspect]
     Active Substance: ITACITINIB
     Route: 048
     Dates: start: 20200722
  7. INCB039110 [Suspect]
     Active Substance: ITACITINIB
     Indication: OBLITERATIVE BRONCHIOLITIS
     Route: 048
     Dates: start: 20200713, end: 20200720

REACTIONS (1)
  - Toxicity to various agents [Recovered/Resolved]

NARRATIVE: CASE EVENT DATE: 20200721
